FAERS Safety Report 7303754-X (Version None)
Quarter: 2011Q1

REPORT INFORMATION
  Report Type: 
  Country: None (occurrence: None)
  Receive Date: 20110221
  Receipt Date: 20110210
  Transmission Date: 20110831
  Serious: Yes (Other)
  Sender: FDA-Public Use
  Company Number: CN-ROCHE-736989

PATIENT
  Age: 39 Year
  Sex: Male
  Weight: 60 kg

DRUGS (3)
  1. AVASTIN [Suspect]
     Indication: GLIOBLASTOMA
     Route: 041
     Dates: start: 20100901
  2. THALIDOMIDE [Concomitant]
     Indication: GLIOBLASTOMA
     Route: 048
     Dates: start: 20100901
  3. DICHLOROACETIC ACID [Suspect]
     Indication: GLIOBLASTOMA
     Dosage: NAME REPORTED AS SODIUM DICHLOROACETATE(DCA).
     Route: 048
     Dates: start: 20110201, end: 20110203

REACTIONS (7)
  - BLOOD CREATININE INCREASED [None]
  - BLINDNESS UNILATERAL [None]
  - GLIOBLASTOMA [None]
  - JOINT RANGE OF MOTION DECREASED [None]
  - LETHARGY [None]
  - GRAND MAL CONVULSION [None]
  - APHASIA [None]
